FAERS Safety Report 24213251 (Version 1)
Quarter: 2024Q3

REPORT INFORMATION
  Report Type: Spontaneous
  Country: US (occurrence: None)
  Receive Date: 20240814
  Receipt Date: 20240814
  Transmission Date: 20241017
  Serious: Yes (Other)
  Sender: Public
  Company Number: None

PATIENT
  Age: 75 Year
  Sex: Female
  Weight: 59.6 kg

DRUGS (6)
  1. PROLIA [Suspect]
     Active Substance: DENOSUMAB
     Indication: Osteoporosis
     Dosage: OTHER FREQUENCY : Q 6 MONTHS;?
     Route: 058
     Dates: start: 20220125, end: 20240306
  2. DEPAKOTE [Concomitant]
     Active Substance: DIVALPROEX SODIUM
  3. METHYLFOL/ME CBL/P5P [Concomitant]
  4. TIZANIDINE [Concomitant]
     Active Substance: TIZANIDINE
  5. TOPIRAMATE [Concomitant]
     Active Substance: TOPIRAMATE
  6. TRAZODONE [Concomitant]
     Active Substance: TRAZODONE HYDROCHLORIDE

REACTIONS (2)
  - Dental caries [None]
  - Tooth loss [None]

NARRATIVE: CASE EVENT DATE: 20230901
